FAERS Safety Report 5667593-8 (Version None)
Quarter: 2008Q1

REPORT INFORMATION
  Report Type: 
  Country: None (occurrence: None)
  Receive Date: 20080315
  Receipt Date: 20080128
  Transmission Date: 20080703
  Serious: No
  Sender: FDA-Public Use
  Company Number: US-ABBOTT-08P-163-0435517-00

PATIENT
  Sex: Male
  Weight: 82.628 kg

DRUGS (4)
  1. HUMIRA [Suspect]
     Indication: ANKYLOSING SPONDYLITIS
     Route: 058
     Dates: start: 20070301, end: 20071001
  2. HUMIRA [Suspect]
     Route: 058
     Dates: start: 20080101
  3. PREDNISONE [Concomitant]
     Indication: ANKYLOSING SPONDYLITIS
     Route: 048
     Dates: start: 19930101
  4. WARFARIN SODIUM [Concomitant]
     Indication: HEART VALVE REPLACEMENT
     Route: 048
     Dates: start: 19970101

REACTIONS (2)
  - CONTUSION [None]
  - HAEMATOMA [None]
